FAERS Safety Report 14566454 (Version 3)
Quarter: 2018Q1

REPORT INFORMATION
  Report Type: Spontaneous
  Country: US (occurrence: US)
  Receive Date: 20180223
  Receipt Date: 20180312
  Transmission Date: 20180509
  Serious: Yes (Hospitalization, Other)
  Sender: FDA-Public Use
  Company Number: US-009507513-1802USA009860

PATIENT
  Sex: Female
  Weight: 99.41 kg

DRUGS (7)
  1. METFORMIN [Concomitant]
     Active Substance: METFORMIN HYDROCHLORIDE
     Dosage: UNK
  2. VITAMIN D [Concomitant]
     Active Substance: CHOLECALCIFEROL
     Dosage: UNK
  3. CLARINEX [Suspect]
     Active Substance: DESLORATADINE
     Indication: SEASONAL ALLERGY
     Dosage: ONE 5 MG TABLET DAILY
     Route: 048
     Dates: start: 2005
  4. FLONASE [Concomitant]
     Active Substance: FLUTICASONE PROPIONATE
     Indication: HYPERSENSITIVITY
     Dosage: TOTAL DAILY DOSE 100 MCG
     Route: 045
     Dates: start: 20160301
  5. VENTOLIN [Concomitant]
     Active Substance: ALBUTEROL SULFATE
     Indication: ASTHMA
     Dosage: MAX 2 PUFFS Q4H
     Route: 055
     Dates: start: 20160517
  6. RANITIDINE. [Concomitant]
     Active Substance: RANITIDINE
     Dosage: UNK
  7. ARNUITY ELLIPTA [Concomitant]
     Active Substance: FLUTICASONE FUROATE
     Indication: ASTHMA
     Dosage: TOTAL DAILY DOSE: 100 MICROGRAM
     Route: 055
     Dates: start: 20171205

REACTIONS (9)
  - Sinusitis [Unknown]
  - Product availability issue [Unknown]
  - Nasal discomfort [Unknown]
  - Ear discomfort [Unknown]
  - Asthma [Unknown]
  - Lower respiratory tract infection [Unknown]
  - Pneumonia [Unknown]
  - Drug dose omission [Unknown]
  - Nasal congestion [Unknown]
